FAERS Safety Report 10133084 (Version 1)
Quarter: 2014Q2

REPORT INFORMATION
  Report Type: Spontaneous
  Country: US (occurrence: US)
  Receive Date: 20140428
  Receipt Date: 20140428
  Transmission Date: 20141212
  Serious: Yes (Hospitalization, Other)
  Sender: FDA-Public Use
  Company Number: US-TEVA-477518USA

PATIENT
  Age: 78 Year
  Sex: Male

DRUGS (7)
  1. AMIODARONE [Suspect]
     Indication: ATRIAL FIBRILLATION
     Route: 065
  2. WARFARIN [Interacting]
     Route: 065
  3. ASPIRIN [Suspect]
     Route: 065
  4. SIMVASTATIN [Concomitant]
     Route: 065
  5. METOPROLOL [Concomitant]
     Route: 065
  6. TAMSULOSIN [Concomitant]
     Route: 065
  7. FINASTERIDE [Concomitant]
     Route: 065

REACTIONS (4)
  - Lip haemorrhage [Recovering/Resolving]
  - Myxoedema coma [Recovering/Resolving]
  - Cardio-respiratory arrest [Recovering/Resolving]
  - Drug interaction [Recovering/Resolving]
